FAERS Safety Report 23324478 (Version 1)
Quarter: 2023Q4

REPORT INFORMATION
  Report Type: Spontaneous
  Country: US (occurrence: US)
  Receive Date: 20231221
  Receipt Date: 20231221
  Transmission Date: 20240110
  Serious: Yes (Other)
  Sender: FDA-Public Use
  Company Number: US-JNJFOC-20231246995

PATIENT
  Age: 41 Year
  Sex: Male

DRUGS (3)
  1. DARATUMUMAB [Suspect]
     Active Substance: DARATUMUMAB
     Indication: POEMS syndrome
     Route: 065
  2. ECULIZUMAB [Concomitant]
     Active Substance: ECULIZUMAB
     Indication: POEMS syndrome
  3. TOCILIZUMAB [Concomitant]
     Active Substance: TOCILIZUMAB
     Indication: POEMS syndrome

REACTIONS (6)
  - Hyperbilirubinaemia [Unknown]
  - Thrombocytopenia [Unknown]
  - Hyperammonaemia [Unknown]
  - Normocytic anaemia [Unknown]
  - Full blood count abnormal [Unknown]
  - Off label use [Unknown]
